FAERS Safety Report 9306537 (Version 1)
Quarter: 2013Q2

REPORT INFORMATION
  Report Type: Spontaneous
  Country: US (occurrence: US)
  Receive Date: 20130523
  Receipt Date: 20130523
  Transmission Date: 20140414
  Serious: Yes (Other)
  Sender: FDA-Public Use
  Company Number: US-BAYER-2013-063829

PATIENT
  Age: 32 Year
  Sex: Female

DRUGS (1)
  1. MIRENA [Suspect]
     Indication: CONTRACEPTION
     Dosage: 20 ?G/D, CONT
     Route: 015
     Dates: start: 201205

REACTIONS (8)
  - Genital haemorrhage [None]
  - Amenorrhoea [None]
  - Device dislocation [None]
  - Vaginal infection [None]
  - Cervicitis [None]
  - Vaginal discharge [None]
  - Device expulsion [None]
  - Pregnancy with contraceptive device [None]
